FAERS Safety Report 12308690 (Version 1)
Quarter: 2016Q2

REPORT INFORMATION
  Report Type: Spontaneous
  Country: US (occurrence: US)
  Receive Date: 20160427
  Receipt Date: 20160427
  Transmission Date: 20160815
  Serious: No
  Sender: FDA-Public Use
  Company Number: US-GLENMARK PHARMACEUTICALS INC, USA.-2015GMK018050

PATIENT

DRUGS (1)
  1. IMIQUIMOD. [Suspect]
     Active Substance: IMIQUIMOD
     Indication: ACTINIC KERATOSIS
     Dosage: UNK
     Route: 061
     Dates: start: 20150529, end: 20150623

REACTIONS (6)
  - Vision blurred [Unknown]
  - Medication error [Unknown]
  - Accidental exposure to product [Unknown]
  - Eyelid oedema [Unknown]
  - Eye pruritus [Unknown]
  - Eye swelling [Unknown]
